FAERS Safety Report 12765325 (Version 1)
Quarter: 2016Q3

REPORT INFORMATION
  Report Type: Spontaneous
  Country: US (occurrence: US)
  Receive Date: 20160921
  Receipt Date: 20160921
  Transmission Date: 20161109
  Serious: No
  Sender: FDA-Public Use
  Company Number: US-PFIZER INC-2016438304

PATIENT
  Age: 57 Year
  Sex: Female
  Weight: 141.97 kg

DRUGS (10)
  1. NIFEDIPINE. [Concomitant]
     Active Substance: NIFEDIPINE
     Indication: HYPERTENSION
     Dosage: 60 MG, 1X/DAY
     Route: 048
  2. GABAPENTIN. [Suspect]
     Active Substance: GABAPENTIN
     Indication: FIBROMYALGIA
     Dosage: 300 MG, 3X/DAY
     Route: 048
     Dates: end: 20160916
  3. SOTALOL HCL [Concomitant]
     Active Substance: SOTALOL
     Indication: ATRIAL FIBRILLATION
     Dosage: 120 MG, 2X/DAY
     Route: 048
  4. MELOXICAM. [Concomitant]
     Active Substance: MELOXICAM
     Indication: PAIN
     Dosage: 15 MG, 1X/DAY
     Route: 048
  5. SULPHASALAZINE [Concomitant]
     Active Substance: SULFASALAZINE
     Indication: FIBROMYALGIA
     Dosage: 500MG, 2 TABLETS 2 TIMES A DAY1000 MG, 2X/DAY
     Route: 048
     Dates: start: 201602
  6. CLONIDINE HCL [Concomitant]
     Active Substance: CLONIDINE HYDROCHLORIDE
     Indication: HYPERTENSION
     Dosage: 0.1MG, TABLET, ONE A DAY OR AS NEEDED
     Route: 048
  7. SULPHASALAZINE [Concomitant]
     Active Substance: SULFASALAZINE
     Indication: ARTHRITIS
  8. GABAPENTIN. [Suspect]
     Active Substance: GABAPENTIN
     Indication: ARTHRITIS
  9. SOTALOL HCL [Concomitant]
     Active Substance: SOTALOL
     Indication: HYPERTENSION
  10. ASPIRIN. [Concomitant]
     Active Substance: ASPIRIN
     Dosage: 81MG, TABLET, ONE A DAY
     Route: 048

REACTIONS (1)
  - Drug ineffective for unapproved indication [Unknown]

NARRATIVE: CASE EVENT DATE: 201602
